FAERS Safety Report 4781958-8 (Version None)
Quarter: 2005Q3

REPORT INFORMATION
  Report Type: 
  Country: None (occurrence: None)
  Receive Date: 20050928
  Receipt Date: 20041026
  Transmission Date: 20060218
  Serious: Yes (Other)
  Sender: FDA-Public Use
  Company Number: US-MERCK-0410USA03832

PATIENT
  Age: 70 Year
  Sex: Female

DRUGS (1)
  1. VIOXX [Suspect]
     Indication: PAIN
     Route: 048
     Dates: start: 19990101

REACTIONS (6)
  - ALOPECIA [None]
  - CEREBROVASCULAR ACCIDENT [None]
  - GLIOSIS [None]
  - MICROANGIOPATHY [None]
  - PAIN [None]
  - TRANSIENT ISCHAEMIC ATTACK [None]
